FAERS Safety Report 8322126-2 (Version None)
Quarter: 2012Q2

REPORT INFORMATION
  Report Type: 
  Country: None (occurrence: None)
  Receive Date: 20120426
  Receipt Date: 20120420
  Transmission Date: 20120825
  Serious: Yes (Death, Hospitalization)
  Sender: FDA-Public Use
  Company Number: 2012SP020486

PATIENT
  Age: 47 Year
  Sex: Female

DRUGS (9)
  1. CLONAZEPAM [Concomitant]
  2. CALCIT [Concomitant]
  3. SEROQUEL [Concomitant]
  4. SYCREST (ASENAPINE) [Suspect]
     Indication: PRODUCT USED FOR UNKNOWN INDICATION
     Dosage: 5 MG;QAM, 5 MG;BID; 15 MG;QD; 20 MG;QD;
     Dates: start: 20120410
  5. SYCREST (ASENAPINE) [Suspect]
     Indication: PRODUCT USED FOR UNKNOWN INDICATION
     Dosage: 5 MG;QAM, 5 MG;BID; 15 MG;QD; 20 MG;QD;
     Dates: start: 20120404
  6. SYCREST (ASENAPINE) [Suspect]
     Indication: PRODUCT USED FOR UNKNOWN INDICATION
     Dosage: 5 MG;QAM, 5 MG;BID; 15 MG;QD; 20 MG;QD;
     Dates: start: 20120413
  7. SYCREST (ASENAPINE) [Suspect]
     Indication: PRODUCT USED FOR UNKNOWN INDICATION
     Dosage: 5 MG;QAM, 5 MG;BID; 15 MG;QD; 20 MG;QD;
     Dates: start: 20120416
  8. DEPAKENE [Concomitant]
  9. TRILEPTAL [Concomitant]

REACTIONS (3)
  - CHOKING [None]
  - AGITATION [None]
  - REFUSAL OF TREATMENT BY PATIENT [None]
